FAERS Safety Report 23331009 (Version 1)
Quarter: 2023Q4

REPORT INFORMATION
  Report Type: Spontaneous
  Country: TN (occurrence: TN)
  Receive Date: 20231222
  Receipt Date: 20231222
  Transmission Date: 20240109
  Serious: Yes (Other)
  Sender: FDA-Public Use
  Company Number: TN-MYLANLABS-2023M1136420

PATIENT
  Age: 29 Year
  Sex: Female

DRUGS (8)
  1. CLOZAPINE [Suspect]
     Active Substance: CLOZAPINE
     Indication: Schizophrenia
     Dosage: 12.5 MILLIGRAM, QD (FOR THE FIRST WEEK)
     Route: 065
  2. CLOZAPINE [Suspect]
     Active Substance: CLOZAPINE
     Dosage: 25 MILLIGRAM, QD (FOR THE SECOND WEEK)
     Route: 065
  3. CLOZAPINE [Suspect]
     Active Substance: CLOZAPINE
     Dosage: UNK (DOSE WAS INCREASED WITH 25?MG/DAY OR 50?MG/DAY EACH WEEK)
     Route: 065
  4. CLOZAPINE [Suspect]
     Active Substance: CLOZAPINE
     Dosage: 650 MILLIGRAM, QD ((300MG IN THE MORNING AND 350MG IN THE EVENING)
     Route: 065
  5. CLOZAPINE [Suspect]
     Active Substance: CLOZAPINE
     Dosage: 300 MILLIGRAM, QD (RESTRICTED TO?300?MG/DAY)
     Route: 065
  6. CLOZAPINE [Suspect]
     Active Substance: CLOZAPINE
     Dosage: 600 MILLIGRAM, QD (RESTART UP TO 600?MG/DAY)
     Route: 065
  7. HALOPERIDOL [Concomitant]
     Active Substance: HALOPERIDOL
     Indication: Schizophrenia
     Dosage: 60 MILLIGRAM, QD (UP TO 60 MG/DAY)
     Route: 065
  8. OLANZAPINE [Concomitant]
     Active Substance: OLANZAPINE
     Indication: Schizophrenia
     Dosage: 20 MILLIGRAM, QD (UP TO 20 MG/DAY)
     Route: 065

REACTIONS (1)
  - Dysphemia [Recovered/Resolved]
